FAERS Safety Report 5753444-X (Version None)
Quarter: 2008Q2

REPORT INFORMATION
  Report Type: 
  Country: None (occurrence: None)
  Receive Date: 20080527
  Receipt Date: 20080508
  Transmission Date: 20081010
  Serious: Yes (Hospitalization)
  Sender: FDA-Public Use
  Company Number: 2008AL004141

PATIENT
  Age: 88 Year
  Sex: Male

DRUGS (4)
  1. DIGOXIN [Suspect]
     Dates: end: 20080101
  2. COUMADIN [Concomitant]
  3. SOTALOL HCL [Concomitant]
  4. CARVEDILOL [Concomitant]

REACTIONS (3)
  - ASTHENIA [None]
  - DIZZINESS [None]
  - THERAPEUTIC AGENT TOXICITY [None]
